FAERS Safety Report 8872066 (Version 5)
Quarter: 2013Q1

REPORT INFORMATION
  Report Type: Report from Study
  Country: US (occurrence: US)
  Receive Date: 20121030
  Receipt Date: 20130222
  Transmission Date: 20140127
  Serious: Yes (Other)
  Sender: FDA-Public Use
  Company Number: US-ROCHE-1147429

PATIENT
  Age: 69 Year
  Sex: Male
  Weight: 81.6 kg

DRUGS (4)
  1. VISMODEGIB [Suspect]
     Indication: BASAL CELL CARCINOMA
     Dosage: LAST DOSE ON 14 MAY 2012
     Route: 048
     Dates: start: 20120224
  2. AZOPT [Concomitant]
     Indication: NORMAL TENSION GLAUCOMA
     Route: 047
     Dates: start: 200906
  3. LATANOPROST [Concomitant]
     Indication: NORMAL TENSION GLAUCOMA
     Route: 047
     Dates: start: 200906
  4. BIOTIN [Concomitant]
     Indication: ALOPECIA
     Route: 065
     Dates: start: 20120613, end: 20120918

REACTIONS (1)
  - Liposarcoma [Recovered/Resolved]
